FAERS Safety Report 10364688 (Version 1)
Quarter: 2014Q3

REPORT INFORMATION
  Report Type: Report from Study
  Country: US (occurrence: US)
  Receive Date: 20140806
  Receipt Date: 20140806
  Transmission Date: 20150326
  Serious: Yes (Hospitalization)
  Sender: FDA-Public Use
  Company Number: US-ROCHE-1443353

PATIENT
  Age: 66 Year
  Sex: Male
  Weight: 91.7 kg

DRUGS (1)
  1. VEMURAFENIB [Suspect]
     Active Substance: VEMURAFENIB
     Indication: MALIGNANT MELANOMA
     Route: 048

REACTIONS (2)
  - Hypertension [Recovered/Resolved]
  - Incarcerated inguinal hernia [Unknown]

NARRATIVE: CASE EVENT DATE: 20140606
